FAERS Safety Report 8111309 (Version 2)
Quarter: 2012Q4

REPORT INFORMATION
  Report Type: 
  Country: US (occurrence: US)
  Receive Date: 20110829
  Receipt Date: 20121219
  Transmission Date: 20130627
  Serious: Yes (Hospitalization)
  Sender: FDA-Public Use
  Company Number: US-GLAXOSMITHKLINE-A0925603A

PATIENT
  Age: 75 Year
  Sex: Male

DRUGS (1)
  1. AVANDIA [Suspect]
     Indication: DIABETES MELLITUS
     Dosage: 8MG Per day
     Route: 048
     Dates: start: 20050927, end: 20070523

REACTIONS (1)
  - Transient ischaemic attack [Not Recovered/Not Resolved]
